FAERS Safety Report 13288313 (Version 1)
Quarter: 2017Q1

REPORT INFORMATION
  Report Type: Report from Study
  Country: IN (occurrence: IN)
  Receive Date: 20170302
  Receipt Date: 20170302
  Transmission Date: 20170428
  Serious: Yes (Hospitalization, Other)
  Sender: FDA-Public Use
  Company Number: IN-INCYTE CORPORATION-2017IN001456

PATIENT
  Age: 81 Year
  Sex: Male
  Weight: 58 kg

DRUGS (1)
  1. JAKAVI [Suspect]
     Active Substance: RUXOLITINIB
     Indication: POLYCYTHAEMIA VERA
     Dosage: 10 MG, BID
     Route: 048
     Dates: start: 20160319

REACTIONS (4)
  - Joint dislocation [Recovered/Resolved]
  - Pruritus [Recovering/Resolving]
  - Fall [Unknown]
  - Polycythaemia [Recovering/Resolving]

NARRATIVE: CASE EVENT DATE: 201602
